FAERS Safety Report 4843102-8 (Version None)
Quarter: 2005Q4

REPORT INFORMATION
  Report Type: 
  Country: None (occurrence: None)
  Receive Date: 20051027
  Receipt Date: 20050926
  Transmission Date: 20060501
  Serious: No
  Sender: FDA-Public Use
  Company Number: ZICO001291

PATIENT
  Age: 53 Year
  Sex: Male

DRUGS (2)
  1. PRIALT [Suspect]
     Dosage: 0.3 MCG/HR INTRATHECAL
     Route: 037
     Dates: start: 20050101, end: 20050101
  2. MORPHINE [Concomitant]

REACTIONS (23)
  - ANAEMIA [None]
  - CHILLS [None]
  - CHROMATURIA [None]
  - CONFUSIONAL STATE [None]
  - CONSTIPATION [None]
  - DIARRHOEA [None]
  - DISTURBANCE IN ATTENTION [None]
  - DRUG INEFFECTIVE [None]
  - HALLUCINATION [None]
  - HALLUCINATION, AUDITORY [None]
  - HEADACHE [None]
  - HYPERTENSION [None]
  - INFLUENZA LIKE ILLNESS [None]
  - MEMORY IMPAIRMENT [None]
  - MOOD ALTERED [None]
  - NERVOUSNESS [None]
  - NEURALGIA [None]
  - OEDEMA PERIPHERAL [None]
  - PNEUMONIA [None]
  - PYREXIA [None]
  - URINARY INCONTINENCE [None]
  - URINARY TRACT INFECTION [None]
  - VOMITING [None]
